FAERS Safety Report 6595953-X (Version None)
Quarter: 2010Q1

REPORT INFORMATION
  Report Type: 
  Country: None (occurrence: None)
  Receive Date: 20100223
  Receipt Date: 20100210
  Transmission Date: 20100710
  Serious: Yes (Other)
  Sender: FDA-Public Use
  Company Number: PHHY2010AU00779

PATIENT
  Sex: Female
  Weight: 80 kg

DRUGS (6)
  1. CERTICAN [Suspect]
     Indication: PROPHYLAXIS AGAINST TRANSPLANT REJECTION
     Dosage: 0.75 UNK, BID
     Route: 048
     Dates: start: 20060401
  2. CERTICAN [Suspect]
     Indication: CHRONIC ALLOGRAFT NEPHROPATHY
  3. AZATHIOPRINE [Concomitant]
     Indication: TRANSPLANT
     Dosage: UNK
     Route: 048
     Dates: start: 19980201
  4. CALCITRIOL [Concomitant]
     Dosage: 0.25
     Route: 048
     Dates: start: 19980201
  5. ATORVASTATIN CALCIUM [Concomitant]
     Indication: BLOOD CHOLESTEROL INCREASED
     Dosage: 80
     Route: 048
     Dates: start: 19980201
  6. PREDNISONE [Concomitant]
     Indication: TRANSPLANT
     Dosage: 7
     Route: 048
     Dates: start: 19980201

REACTIONS (4)
  - ANGIOPATHY [None]
  - BLOOD CREATININE INCREASED [None]
  - CHRONIC ALLOGRAFT NEPHROPATHY [None]
  - KIDNEY TRANSPLANT REJECTION [None]
